FAERS Safety Report 7790275-3 (Version None)
Quarter: 2011Q3

REPORT INFORMATION
  Report Type: 
  Country: None (occurrence: None)
  Receive Date: 20110930
  Receipt Date: 20110927
  Transmission Date: 20111222
  Serious: Yes (Other)
  Sender: FDA-Public Use
  Company Number: ZA-PFIZER INC-2011230671

PATIENT
  Age: 86 Year
  Sex: Female

DRUGS (4)
  1. VITAMIN TAB [Concomitant]
     Dosage: UNK
  2. CALTRATE PLUS [Concomitant]
     Dosage: 2 TABLETS, 1X/DAY
     Route: 048
  3. TOLTERODINE TARTRATE [Suspect]
     Indication: HYPERTONIC BLADDER
     Dosage: 4 MG, 1X/DAY (DAILY)
     Route: 048
     Dates: start: 20110101
  4. FOSAMAX [Concomitant]
     Dosage: 1 TABLET, WEEKLY
     Route: 048

REACTIONS (4)
  - FATIGUE [None]
  - VISUAL ACUITY REDUCED [None]
  - STRESS [None]
  - DISTURBANCE IN ATTENTION [None]
